FAERS Safety Report 11534388 (Version 1)
Quarter: 2015Q3

REPORT INFORMATION
  Report Type: Spontaneous
  Country: CA (occurrence: CA)
  Receive Date: 20150922
  Receipt Date: 20150922
  Transmission Date: 20151125
  Serious: Yes (Hospitalization, Other)
  Sender: FDA-Public Use
  Company Number: CA-TEVA-594512USA

PATIENT
  Age: 38 Year
  Sex: Female

DRUGS (7)
  1. CITALOPRAM [Concomitant]
     Active Substance: CITALOPRAM HYDROBROMIDE
     Dosage: 40 MG DAILY
     Route: 065
  2. DIMENHYDRINATE. [Suspect]
     Active Substance: DIMENHYDRINATE
     Indication: GASTROOESOPHAGEAL REFLUX DISEASE
     Dosage: INITIALLY TEN 50-MG TABLETS 3 TO 4 DAYS A WEEK; LATER, FREQUENCY INCREASED
     Route: 065
  3. ZUCLOPENTHIXOL [Concomitant]
     Active Substance: ZUCLOPENTHIXOL
     Dosage: 250 MG/ 2 WEEKS
     Route: 030
  4. PROPRANOLOL [Concomitant]
     Active Substance: PROPRANOLOL\PROPRANOLOL HYDROCHLORIDE
     Dosage: 20 MG TWICE DAILY
     Route: 065
  5. DIMENHYDRINATE. [Suspect]
     Active Substance: DIMENHYDRINATE
     Indication: OVERDOSE
     Dosage: DAILY USE OF 20 OR 30 TABLETS
     Route: 065
  6. CLOZAPINE. [Suspect]
     Active Substance: CLOZAPINE
     Route: 065
  7. HALOPERIDOL. [Concomitant]
     Active Substance: HALOPERIDOL
     Dosage: 1MG/DAY
     Route: 065

REACTIONS (9)
  - Delirium [Unknown]
  - Psychotic disorder [Recovering/Resolving]
  - Drug abuse [Recovering/Resolving]
  - Toxicity to various agents [Recovering/Resolving]
  - Sedation [Unknown]
  - Drug dependence [Unknown]
  - Intentional overdose [Unknown]
  - Tachycardia [Not Recovered/Not Resolved]
  - Hypotension [Unknown]
